FAERS Safety Report 12692538 (Version 1)
Quarter: 2016Q3

REPORT INFORMATION
  Report Type: Other
  Country: GB (occurrence: JP)
  Receive Date: 20160829
  Receipt Date: 20160829
  Transmission Date: 20161109
  Serious: Yes (Other)
  Sender: FDA-Public Use
  Company Number: JP-CLARIS PHARMASERVICES-1056813

PATIENT
  Age: 39 Year
  Sex: Male

DRUGS (10)
  1. DORZOLAMIDE [Concomitant]
     Active Substance: DORZOLAMIDE
  2. TIMOLOL. [Concomitant]
     Active Substance: TIMOLOL
  3. BLONANSERIN [Suspect]
     Active Substance: BLONANSERIN
  4. TAFLUPROST [Concomitant]
     Active Substance: TAFLUPROST
  5. OLANZAPINE. [Suspect]
     Active Substance: OLANZAPINE
  6. CHLORPROMAZINE. [Suspect]
     Active Substance: CHLORPROMAZINE
  7. QUETIAPINE. [Suspect]
     Active Substance: QUETIAPINE
  8. ARIPIPRAZOLE. [Suspect]
     Active Substance: ARIPIPRAZOLE
  9. RISPERIDONE. [Suspect]
     Active Substance: RISPERIDONE
  10. HALOPERIDOL. [Suspect]
     Active Substance: HALOPERIDOL
     Indication: SCHIZOPHRENIA

REACTIONS (1)
  - Floppy iris syndrome [Recovered/Resolved]
